FAERS Safety Report 5711212-9 (Version None)
Quarter: 2008Q2

REPORT INFORMATION
  Report Type: 
  Country: None (occurrence: None)
  Receive Date: 20080421
  Receipt Date: 20080411
  Transmission Date: 20081010
  Serious: Yes (Other)
  Sender: FDA-Public Use
  Company Number: IL-SOLVAY-00208001547

PATIENT
  Age: 25 Year
  Sex: Female

DRUGS (2)
  1. PROGESTERONE [Suspect]
     Indication: AMENORRHOEA
     Dosage: DAILY DOSE: 200 MILLIGRAM(S)
     Route: 048
     Dates: start: 20041127, end: 20041204
  2. DONOR LYMPHOCYTE INFUSIONS [Suspect]
     Indication: STEM CELL TRANSPLANT
     Dosage: DAILY DOSE:  UNKNOWN
     Route: 042
     Dates: start: 20040103, end: 20041104

REACTIONS (3)
  - ACUTE GRAFT VERSUS HOST DISEASE IN SKIN [None]
  - CONJUNCTIVITIS [None]
  - GRAFT VERSUS HOST DISEASE [None]
